FAERS Safety Report 8761624 (Version 1)
Quarter: 2012Q4

REPORT INFORMATION
  Report Type: Spontaneous
  Country: US (occurrence: None)
  Receive Date: 20120830
  Receipt Date: 20120830
  Transmission Date: 20130627
  Serious: Yes (Other)
  Sender: FDA-Public Use
  Company Number: None

PATIENT
  Age: 57 Year
  Sex: Female
  Weight: 70.31 kg

DRUGS (2)
  1. GAMUNEX [Suspect]
     Dates: start: 20120112
  2. GAMUNEX [Suspect]
     Dates: start: 20120112

REACTIONS (7)
  - Nausea [None]
  - Tremor [None]
  - Dysarthria [None]
  - Oedema [None]
  - Confusional state [None]
  - Cognitive disorder [None]
  - Epstein-Barr virus test positive [None]
